FAERS Safety Report 7205955-8 (Version None)
Quarter: 2011Q1

REPORT INFORMATION
  Report Type: 
  Country: None (occurrence: None)
  Receive Date: 20110103
  Receipt Date: 20101223
  Transmission Date: 20110831
  Serious: No
  Sender: FDA-Public Use
  Company Number: US-BIOGENIDEC-2010BI035508

PATIENT
  Age: 44 Year
  Sex: Male

DRUGS (3)
  1. AVONEX [Concomitant]
     Indication: MULTIPLE SCLEROSIS
  2. TYSABRI [Suspect]
     Indication: MULTIPLE SCLEROSIS
     Route: 042
     Dates: start: 20100618
  3. COPAXONE [Concomitant]
     Indication: MULTIPLE SCLEROSIS

REACTIONS (6)
  - MOBILITY DECREASED [None]
  - FATIGUE [None]
  - BALANCE DISORDER [None]
  - DRUG INEFFECTIVE [None]
  - DYSSTASIA [None]
  - GAIT DISTURBANCE [None]
